FAERS Safety Report 8377667-9 (Version None)
Quarter: 2012Q2

REPORT INFORMATION
  Report Type: 
  Country: None (occurrence: None)
  Receive Date: 20120522
  Receipt Date: 20120517
  Transmission Date: 20120825
  Serious: Yes (Hospitalization)
  Sender: FDA-Public Use
  Company Number: US-GLAXOSMITHKLINE-A0718446A

PATIENT
  Age: 49 Year
  Sex: Male
  Weight: 186.4 kg

DRUGS (9)
  1. AVANDIA [Suspect]
     Indication: DIABETES MELLITUS
     Dosage: 4MG TWICE PER DAY
     Route: 048
     Dates: start: 20050221, end: 20070226
  2. GLUCOTROL XL [Concomitant]
     Dates: start: 20030601, end: 20050301
  3. COREG [Concomitant]
     Dates: start: 20031201, end: 20070401
  4. MEDROL [Concomitant]
     Dates: start: 20060128, end: 20060201
  5. AVANDAMET [Suspect]
     Indication: DIABETES MELLITUS
     Route: 048
     Dates: start: 20050221, end: 20070401
  6. LANTUS [Concomitant]
     Dates: start: 20050617, end: 20070601
  7. AVANDARYL [Suspect]
     Indication: DIABETES MELLITUS
     Route: 048
     Dates: start: 20050221, end: 20070401
  8. METFORMIN HCL [Concomitant]
     Dates: start: 20030601, end: 20070401
  9. AMARYL [Concomitant]
     Dates: start: 20070318, end: 20070501

REACTIONS (3)
  - CARDIAC FAILURE CONGESTIVE [None]
  - MYOCARDIAL INFARCTION [None]
  - HYPERTENSION [None]
